FAERS Safety Report 4279519-2 (Version None)
Quarter: 2004Q1

REPORT INFORMATION
  Report Type: 
  Country: None (occurrence: None)
  Receive Date: 20040126
  Receipt Date: 20040126
  Transmission Date: 20041129
  Serious: Yes (Other)
  Sender: FDA-Public Use
  Company Number: None

PATIENT
  Age: 24 Year
  Sex: Female
  Weight: 61.2356 kg

DRUGS (1)
  1. DEPO-PROVERA [Suspect]
     Dosage: ONE SHOT

REACTIONS (14)
  - AMNESIA [None]
  - CONTUSION [None]
  - DEPRESSION [None]
  - FATIGUE [None]
  - FEELING HOT AND COLD [None]
  - HAIR GROWTH ABNORMAL [None]
  - HEADACHE [None]
  - IMMUNE SYSTEM DISORDER [None]
  - IMPAIRED HEALING [None]
  - MOOD SWINGS [None]
  - MUSCULOSKELETAL DISORDER [None]
  - NIGHT SWEATS [None]
  - SINUS DISORDER [None]
  - SLEEP DISORDER [None]
